FAERS Safety Report 23498430 (Version 1)
Quarter: 2024Q1

REPORT INFORMATION
  Report Type: Report from Study
  Country: US (occurrence: US)
  Receive Date: 20240207
  Receipt Date: 20240207
  Transmission Date: 20240410
  Serious: Yes (Hospitalization, Other)
  Sender: FDA-Public Use
  Company Number: US-ABBVIE-5620297

PATIENT
  Sex: Male

DRUGS (1)
  1. HUMIRA [Suspect]
     Active Substance: ADALIMUMAB
     Indication: Hidradenitis
     Route: 058
     Dates: start: 20200831

REACTIONS (5)
  - Hospitalisation [Unknown]
  - Colectomy [Unknown]
  - Pain [Unknown]
  - Neoplasm malignant [Unknown]
  - Procedural complication [Unknown]

NARRATIVE: CASE EVENT DATE: 20200101
